FAERS Safety Report 22528920 (Version 1)
Quarter: 2023Q2

REPORT INFORMATION
  Report Type: Spontaneous
  Country: CN (occurrence: CN)
  Receive Date: 20230607
  Receipt Date: 20230607
  Transmission Date: 20230722
  Serious: Yes (Other)
  Sender: FDA-Public Use
  Company Number: None

PATIENT
  Age: 59 Year
  Sex: Female
  Weight: 67 kg

DRUGS (8)
  1. CYCLOPHOSPHAMIDE [Suspect]
     Active Substance: CYCLOPHOSPHAMIDE
     Indication: Breast cancer female
     Dosage: 950 MG, QD, DILUTED WITH 40 ML OF SODIUM CHLORIDE, AS PART OF FIRST CHEMOTHERAPY
     Route: 042
     Dates: start: 20230116
  2. CYCLOPHOSPHAMIDE [Suspect]
     Active Substance: CYCLOPHOSPHAMIDE
     Indication: Chemotherapy
     Dosage: 950 MG, QD, DILUTED WITH 40 ML OF SODIUM CHLORIDE, AS PART OF SECOND CHEMOTHERAPY
     Route: 042
     Dates: start: 20230206, end: 20230206
  3. SODIUM CHLORIDE [Suspect]
     Active Substance: SODIUM CHLORIDE
     Indication: Medication dilution
     Dosage: 40 ML, QD, USED TO DILUTE 950 MG OF CYCLOPHOSPHAMIDE, AS PART OF FIRST CHEMOTHERAPY
     Route: 042
     Dates: start: 20230116
  4. SODIUM CHLORIDE [Suspect]
     Active Substance: SODIUM CHLORIDE
     Dosage: 40 ML, QD, USED TO DILUTE 950 MG OF CYCLOPHOSPHAMIDE, AS PART OF SECOND CHEMOTHERAPY
     Route: 042
     Dates: start: 20230206, end: 20230206
  5. SODIUM CHLORIDE [Suspect]
     Active Substance: SODIUM CHLORIDE
     Dosage: 100 ML, QD, USED TO DILUTE 140 MG OF PHARMORUBICIN, AS PART OF FIRST CHEMOTHERAPY
     Route: 041
     Dates: start: 20230116
  6. SODIUM CHLORIDE [Suspect]
     Active Substance: SODIUM CHLORIDE
     Dosage: 100 ML, QD, USED TO DILUTE 140 MG OF PHARMORUBICIN, AS PART OF SECOND CHEMOTHERAPY
     Route: 041
     Dates: start: 20230206, end: 20230206
  7. EPIRUBICIN [Suspect]
     Active Substance: EPIRUBICIN
     Indication: Breast cancer female
     Dosage: 140 MG, QD, DILUTED WITH 100 ML OF SODIUM CHLORIDE, AS PART OF FIRST CHEMOTHERAPY
     Route: 041
     Dates: start: 20230116
  8. EPIRUBICIN [Suspect]
     Active Substance: EPIRUBICIN
     Indication: Chemotherapy
     Dosage: 140 MG, QD, DILUTED WITH 100 ML OF SODIUM CHLORIDE, AS PART OF SECOND CHEMOTHERAPY
     Route: 041
     Dates: start: 20230206, end: 20230206

REACTIONS (2)
  - White blood cell count decreased [Recovered/Resolved]
  - Agranulocytosis [Recovered/Resolved]

NARRATIVE: CASE EVENT DATE: 20230216
